FAERS Safety Report 5858795-6 (Version None)
Quarter: 2008Q3

REPORT INFORMATION
  Report Type: 
  Country: None (occurrence: None)
  Receive Date: 20080825
  Receipt Date: 20080814
  Transmission Date: 20090109
  Serious: Yes (Life-Threatening)
  Sender: FDA-Public Use
  Company Number: 2008AL009596

PATIENT
  Age: 73 Year
  Sex: Female

DRUGS (1)
  1. DIGOXIN [Suspect]
     Indication: HEART RATE IRREGULAR
     Dosage: BID,PO
     Route: 048

REACTIONS (6)
  - ANOREXIA [None]
  - DIARRHOEA [None]
  - HYPERHIDROSIS [None]
  - NAUSEA [None]
  - PNEUMONIA [None]
  - TRANSIENT ISCHAEMIC ATTACK [None]
